FAERS Safety Report 15448001 (Version 3)
Quarter: 2019Q1

REPORT INFORMATION
  Report Type: Report from Study
  Country: US (occurrence: US)
  Receive Date: 20180928
  Receipt Date: 20190304
  Transmission Date: 20190417
  Serious: No
  Sender: FDA-Public Use
  Company Number: PHEH2018US040149

PATIENT
  Sex: Female

DRUGS (3)
  1. GILENYA [Suspect]
     Active Substance: FINGOLIMOD HYDROCHLORIDE
     Indication: MULTIPLE SCLEROSIS
     Dosage: 0.5 MG, QD
     Route: 048
     Dates: start: 20180516
  2. GILENYA [Suspect]
     Active Substance: FINGOLIMOD HYDROCHLORIDE
     Indication: RELAPSING-REMITTING MULTIPLE SCLEROSIS
     Dosage: 0.5 MG, QD
     Route: 048
     Dates: start: 20180324
  3. GILENYA [Suspect]
     Active Substance: FINGOLIMOD HYDROCHLORIDE
     Dosage: 0.5 MG, QOD
     Route: 048

REACTIONS (14)
  - Weight increased [Unknown]
  - Chest pain [Unknown]
  - Dyspnoea [Unknown]
  - Abdominal discomfort [Unknown]
  - Prescribed underdose [Unknown]
  - Pain in extremity [Unknown]
  - Blood potassium decreased [Unknown]
  - Nausea [Unknown]
  - Headache [Recovered/Resolved]
  - Blood pressure increased [Recovering/Resolving]
  - Vomiting [Unknown]
  - Gait disturbance [Unknown]
  - Weight decreased [Unknown]
  - White blood cell count decreased [Unknown]
